FAERS Safety Report 18618352 (Version 1)
Quarter: 2020Q4

REPORT INFORMATION
  Report Type: Spontaneous
  Country: CN (occurrence: CN)
  Receive Date: 20201215
  Receipt Date: 20201215
  Transmission Date: 20210114
  Serious: Yes (Other)
  Sender: FDA-Public Use
  Company Number: CN-ASTRAZENECA-2020SF63540

PATIENT
  Age: 64 Year
  Sex: Male
  Weight: 60 kg

DRUGS (8)
  1. BRICANYL [Suspect]
     Active Substance: TERBUTALINE SULFATE
     Indication: BRONCHOPNEUMOPATHY
     Route: 055
     Dates: start: 20201109, end: 20201109
  2. DOXOFYLLINE INJECTION [Concomitant]
     Active Substance: DOXOFYLLINE
  3. CEFTAZIDIME. [Concomitant]
     Active Substance: CEFTAZIDIME
     Dosage: 1.5G.Q12H
  4. PULMICORT RESPULES [Suspect]
     Active Substance: BUDESONIDE
     Indication: BRONCHOPNEUMOPATHY
     Route: 055
     Dates: start: 20201110
  5. PULMICORT RESPULES [Suspect]
     Active Substance: BUDESONIDE
     Indication: BRONCHOPNEUMOPATHY
     Route: 055
     Dates: start: 20201109, end: 20201109
  6. ATROVENT [Suspect]
     Active Substance: IPRATROPIUM BROMIDE
     Indication: BRONCHOPNEUMOPATHY
     Route: 055
     Dates: start: 20201109, end: 20201109
  7. SODIUM CHLORIDE INJECTION [Concomitant]
     Active Substance: SODIUM CHLORIDE
  8. ATROVENT [Suspect]
     Active Substance: IPRATROPIUM BROMIDE
     Indication: BRONCHOPNEUMOPATHY
     Route: 055
     Dates: start: 20201110

REACTIONS (5)
  - Oxygen saturation decreased [Unknown]
  - Tachypnoea [Recovering/Resolving]
  - Hyperhidrosis [Recovered/Resolved]
  - Pallor [Unknown]
  - Chest discomfort [Recovering/Resolving]

NARRATIVE: CASE EVENT DATE: 20201121
